FAERS Safety Report 6194590-9 (Version None)
Quarter: 2009Q2

REPORT INFORMATION
  Report Type: 
  Country: None (occurrence: None)
  Receive Date: 20090519
  Receipt Date: 20090512
  Transmission Date: 20091009
  Serious: Yes (Death, Other)
  Sender: FDA-Public Use
  Company Number: HK-BAYER-200920887GPV

PATIENT
  Age: 21 Year
  Sex: Male

DRUGS (5)
  1. ALEMTUZUMAB [Suspect]
     Indication: LARGE GRANULAR LYMPHOCYTOSIS
  2. CYCLOSPORINE [Suspect]
     Indication: LARGE GRANULAR LYMPHOCYTOSIS
  3. FLUDARABINE PHOSPHATE [Concomitant]
     Indication: LARGE GRANULAR LYMPHOCYTOSIS
     Dosage: 4 CYCLES
  4. MITOXANTRONE [Concomitant]
     Indication: LARGE GRANULAR LYMPHOCYTOSIS
     Dosage: 4 CYCLES
  5. DEXAMETHASONE 4MG TAB [Concomitant]
     Indication: LARGE GRANULAR LYMPHOCYTOSIS
     Dosage: 4 CYCLES

REACTIONS (4)
  - GASTROINTESTINAL HAEMORRHAGE [None]
  - HERPES ZOSTER DISSEMINATED [None]
  - PNEUMONIA [None]
  - SEPTIC SHOCK [None]
